FAERS Safety Report 8928611 (Version 2)
Quarter: 2013Q1

REPORT INFORMATION
  Report Type: Spontaneous
  Country: NL (occurrence: NL)
  Receive Date: 20121128
  Receipt Date: 20130109
  Transmission Date: 20140127
  Serious: Yes (Hospitalization)
  Sender: FDA-Public Use
  Company Number: PHHY2012NL108164

PATIENT
  Sex: Male

DRUGS (5)
  1. ZOMETA [Suspect]
     Indication: PROSTATE CANCER METASTATIC
     Dosage: 4 MG, PER 100 ML 1X28 DAYS
     Route: 042
  2. ZOMETA [Suspect]
     Dosage: 4 MG, PER 100 ML 1X28 DAYS
     Route: 042
     Dates: start: 20120326
  3. ZOMETA [Suspect]
     Dosage: 4 MG, PER 100 ML 1X28 DAYS
     Route: 042
     Dates: start: 20121008
  4. ZOMETA [Suspect]
     Dosage: 4 MG, PER 100 ML 1X28 DAYS
     Route: 042
     Dates: start: 20121207
  5. ZOMETA [Suspect]
     Dosage: 4 MG, PER 100 ML 1X28 DAYS
     Route: 042
     Dates: start: 20120104

REACTIONS (2)
  - Cancer pain [Unknown]
  - Pain in extremity [Unknown]
